FAERS Safety Report 4592600-3 (Version None)
Quarter: 2005Q1

REPORT INFORMATION
  Report Type: 
  Country: None (occurrence: None)
  Receive Date: 20050228
  Receipt Date: 20050103
  Transmission Date: 20050727
  Serious: Yes (Other)
  Sender: FDA-Public Use
  Company Number: FR-BRISTOL-MYERS SQUIBB COMPANY-12825477

PATIENT
  Age: 2 Month
  Sex: Female

DRUGS (1)
  1. MUCOMYST [Suspect]
     Route: 048
     Dates: start: 20041230, end: 20041231

REACTIONS (3)
  - HAEMATOMA [None]
  - OEDEMA [None]
  - RASH PAPULAR [None]
